FAERS Safety Report 25646793 (Version 1)
Quarter: 2025Q3

REPORT INFORMATION
  Report Type: Report from Study
  Country: EU (occurrence: EU)
  Receive Date: 20250805
  Receipt Date: 20250805
  Transmission Date: 20251020
  Serious: Yes (Hospitalization)
  Sender: ABBVIE
  Company Number: EU-ABBVIE-6400931

PATIENT
  Age: 60 Year
  Sex: Male

DRUGS (1)
  1. RINVOQ [Suspect]
     Active Substance: UPADACITINIB
     Indication: Dermatitis atopic
     Route: 048
     Dates: start: 20231031, end: 20250411

REACTIONS (4)
  - Corneal disorder [Unknown]
  - Eczema [Unknown]
  - Herpes virus infection [Unknown]
  - Keratitis [Unknown]

NARRATIVE: CASE EVENT DATE: 20250326
